FAERS Safety Report 7004700-9 (Version None)
Quarter: 2010Q3

REPORT INFORMATION
  Report Type: 
  Country: None (occurrence: None)
  Receive Date: 20100921
  Receipt Date: 20100913
  Transmission Date: 20110219
  Serious: Yes (Hospitalization)
  Sender: FDA-Public Use
  Company Number: PHHO2010US14132

PATIENT
  Sex: Male

DRUGS (2)
  1. AFINITOR [Suspect]
     Indication: BLADDER TRANSITIONAL CELL CARCINOMA
     Dosage: UNK
     Dates: start: 20091116, end: 20100211
  2. COUMADIN [Concomitant]

REACTIONS (4)
  - DUODENITIS HAEMORRHAGIC [None]
  - ENTERITIS [None]
  - FAECES DISCOLOURED [None]
  - FATIGUE [None]
